FAERS Safety Report 4370077-0 (Version None)
Quarter: 2004Q2

REPORT INFORMATION
  Report Type: 
  Country: None (occurrence: None)
  Receive Date: 20040525
  Receipt Date: 20040512
  Transmission Date: 20050107
  Serious: Yes (Hospitalization, Other)
  Sender: FDA-Public Use
  Company Number: 2004022539

PATIENT
  Age: 58 Year
  Sex: Female
  Weight: 72 kg

DRUGS (6)
  1. AMLODIPINE (AMLODIPINE) [Suspect]
     Indication: HYPERTENSION
     Dosage: 5 MG (1 IN 1 D), ORAL
     Route: 048
     Dates: start: 20040319, end: 20040101
  2. IRBESARTAN (IRBESARTAN) [Suspect]
     Indication: HYPERTENSION
     Dosage: (IN 1N 1 D), ORAL
     Route: 048
     Dates: start: 20031202, end: 20040201
  3. FLUVASTATIN (FLUVASTATIN) [Concomitant]
  4. METFORMIN HCL [Concomitant]
  5. BUDESONIDE (BUDESONIDE) [Concomitant]
  6. FORMOTEROL FUMARATE (FORMOTEROL FUMARATE) [Concomitant]

REACTIONS (2)
  - ANGIONEUROTIC OEDEMA [None]
  - DISEASE RECURRENCE [None]
